FAERS Safety Report 20769326 (Version 4)
Quarter: 2023Q4

REPORT INFORMATION
  Report Type: Report from Study
  Country: CN (occurrence: CN)
  Receive Date: 20220429
  Receipt Date: 20231023
  Transmission Date: 20240110
  Serious: Yes (Hospitalization, Other)
  Sender: FDA-Public Use
  Company Number: CN-NOVARTISPH-NVSC2022CN095344

PATIENT
  Age: 58 Year
  Sex: Female
  Weight: 77 kg

DRUGS (1)
  1. FEMARA [Suspect]
     Active Substance: LETROZOLE
     Indication: Breast cancer stage III
     Dosage: 2.5 MG, QD
     Route: 048
     Dates: start: 20220323

REACTIONS (8)
  - Hypertension [Not Recovered/Not Resolved]
  - Aortic valve disease [Unknown]
  - Electrocardiogram ST-T change [Unknown]
  - Brain natriuretic peptide increased [Unknown]
  - Sinus tachycardia [Unknown]
  - Left ventricular dysfunction [Unknown]
  - Electrocardiogram abnormal [Unknown]
  - Ventricular extrasystoles [Unknown]

NARRATIVE: CASE EVENT DATE: 20220407
